FAERS Safety Report 5497293-9 (Version None)
Quarter: 2007Q4

REPORT INFORMATION
  Report Type: 
  Country: None (occurrence: None)
  Receive Date: 20071025
  Receipt Date: 20061025
  Transmission Date: 20080405
  Serious: No
  Sender: FDA-Public Use
  Company Number: A0621330A

PATIENT
  Age: 58 Year
  Sex: Male

DRUGS (6)
  1. ADVAIR DISKUS 100/50 [Suspect]
     Indication: ASTHMA
     Dosage: 1PUFF TWICE PER DAY
     Route: 055
  2. FLUTICASONE PROPIONATE [Concomitant]
  3. ZYRTEC [Concomitant]
  4. FOLIC ACID [Concomitant]
  5. UNSPECIFIED MEDICATION [Concomitant]
     Indication: COLITIS
  6. NEXIUM [Concomitant]

REACTIONS (4)
  - COUGH [None]
  - ILL-DEFINED DISORDER [None]
  - PHARMACEUTICAL PRODUCT COMPLAINT [None]
  - PRODUCTIVE COUGH [None]
